FAERS Safety Report 9059463 (Version 1)
Quarter: 2013Q1

REPORT INFORMATION
  Report Type: Spontaneous
  Country: JP (occurrence: JP)
  Receive Date: 20130212
  Receipt Date: 20130212
  Transmission Date: 20140127
  Serious: Yes (Other)
  Sender: FDA-Public Use
  Company Number: JP-009507513-1302JPN003787

PATIENT
  Age: 63 Year
  Sex: Male

DRUGS (5)
  1. PEGINTRON [Suspect]
     Dosage: 1.5 MICROGRAM PER KILOGRAM, UNK
     Route: 058
     Dates: start: 20130116
  2. PEGINTRON [Suspect]
     Dosage: 1.2 MICROGRAM PER KILOGRAM, UNK
     Route: 058
     Dates: start: 20130127
  3. REBETOL [Suspect]
     Dosage: 800 MG, QD
     Route: 048
     Dates: start: 20130116
  4. TELAVIC [Suspect]
     Dosage: 2250MG, QD
     Route: 048
     Dates: start: 20130116
  5. TELAVIC [Suspect]
     Dosage: 1500MG, QD
     Route: 048
     Dates: start: 20130127

REACTIONS (1)
  - Platelet count decreased [Not Recovered/Not Resolved]
